FAERS Safety Report 7629068-6 (Version None)
Quarter: 2011Q3

REPORT INFORMATION
  Report Type: 
  Country: None (occurrence: None)
  Receive Date: 20110722
  Receipt Date: 20110722
  Transmission Date: 20111222
  Serious: Yes (Hospitalization)
  Sender: FDA-Public Use
  Company Number: None

PATIENT
  Age: 29 Year
  Sex: Male
  Weight: 100 kg

DRUGS (5)
  1. DILAUDID [Interacting]
     Route: 017
  2. LOVENOX [Suspect]
     Indication: THROMBOSIS PROPHYLAXIS
     Dosage: 30 MG
     Route: 058
     Dates: start: 20110528, end: 20110601
  3. NEXIUM [Interacting]
     Route: 017
  4. ZOFRAN [Interacting]
     Route: 017
  5. KEFZOL [Interacting]
     Route: 042

REACTIONS (3)
  - TACHYCARDIA [None]
  - HEPATIC HAEMATOMA [None]
  - POSTOPERATIVE FEVER [None]
